FAERS Safety Report 8898476 (Version 1)
Quarter: 2012Q4

REPORT INFORMATION
  Report Type: Report from Study
  Country: FR (occurrence: FR)
  Receive Date: 20121109
  Receipt Date: 20121109
  Transmission Date: 20130627
  Serious: Yes (Death, Hospitalization)
  Sender: FDA-Public Use
  Company Number: FR-TEVA-368878ISR

PATIENT
  Age: 82 None
  Sex: Female
  Weight: 90 kg

DRUGS (23)
  1. TRISENOX [Suspect]
     Indication: ACUTE MYELOID LEUKAEMIA
     Dosage: .15 mg/kg Daily;
     Route: 042
     Dates: start: 20120130, end: 20120203
  2. TRISENOX [Suspect]
     Dosage: .15 mg/kg Daily;
     Route: 042
     Dates: start: 20120206, end: 20120210
  3. TRISENOX [Suspect]
     Route: 042
     Dates: start: 20120213, end: 20120215
  4. IDARUBICIN [Suspect]
     Indication: ACUTE MYELOID LEUKAEMIA
     Dosage: 9 mg/m2 Daily;
     Route: 042
     Dates: start: 20120130, end: 20120130
  5. MOVICOL [Concomitant]
     Indication: CONSTIPATION PROPHYLAXIS
     Dosage: 26 Gram Daily;
     Route: 048
     Dates: start: 20120113
  6. CELIPROLOL [Concomitant]
     Indication: HYPERTENSION
     Dosage: 200 Milligram Daily;
     Route: 048
     Dates: start: 201111
  7. SPASFON 80 MG [Concomitant]
     Indication: PAIN
     Dosage: 240 Milligram Daily;
     Route: 048
     Dates: start: 20111124
  8. MOPRAL [Concomitant]
     Indication: GASTRITIS PROPHYLAXIS
     Dosage: 40 Milligram Daily;
     Route: 048
     Dates: start: 20111204
  9. GAVISCON [Concomitant]
     Indication: GASTROOESOPHAGEAL REFLUX PROPHYLAXIS
     Dosage: 1 Dosage forms Daily;
     Route: 048
     Dates: start: 20111204
  10. SKENAN LP [Concomitant]
     Indication: PAIN
     Route: 048
     Dates: start: 20111124
  11. ACTISKENAN [Concomitant]
     Indication: PAIN
     Route: 048
     Dates: start: 20111130
  12. DIFFU K [Concomitant]
     Indication: HYPOKALAEMIA
     Dosage: 16 Millimol Daily;
     Route: 048
     Dates: start: 20120113
  13. IPRATROPIUM AD [Concomitant]
     Dosage: 3 Dosage forms Daily;
     Route: 055
     Dates: start: 20120215
  14. LASILIX 40 MG [Concomitant]
     Route: 048
     Dates: start: 20120215
  15. BRICANYL [Concomitant]
     Dosage: 3 Dosage forms Daily;
     Route: 055
  16. SOLUPRED 20 MG [Concomitant]
     Dates: start: 201202
  17. BISOPROLOL [Concomitant]
  18. LOVENOX [Concomitant]
  19. LOVENOX [Concomitant]
     Route: 065
  20. METOCLOPRAMIDE [Concomitant]
     Route: 042
  21. MAGNESIUM SULFATE [Concomitant]
     Route: 042
  22. ATARAX 0.5MG [Concomitant]
     Dosage: .5 Milligram Daily;
  23. LOVENOX [Concomitant]

REACTIONS (4)
  - Septic shock [Fatal]
  - Aortic stenosis [Not Recovered/Not Resolved]
  - Sigmoiditis [Not Recovered/Not Resolved]
  - Pulmonary oedema [Unknown]
